FAERS Safety Report 15867539 (Version 1)
Quarter: 2019Q1

REPORT INFORMATION
  Report Type: Spontaneous
  Country: US (occurrence: US)
  Receive Date: 20190102
  Receipt Date: 20190102
  Transmission Date: 20190417
  Serious: No
  Sender: FDA-Public Use
  Company Number: None

PATIENT
  Age: 53 Year
  Sex: Male

DRUGS (2)
  1. ENBREL [Suspect]
     Active Substance: ETANERCEPT
     Indication: RHEUMATOID ARTHRITIS
     Dosage: INJECT 50 MG SUBCUTANEOUSLY ONCE WEEKLY AS DIRECTED??
     Route: 058
     Dates: start: 201810
  2. ENBREL [Suspect]
     Active Substance: ETANERCEPT
     Indication: PSORIATIC ARTHROPATHY
     Dosage: INJECT 50 MG SUBCUTANEOUSLY ONCE WEEKLY AS DIRECTED??
     Route: 058
     Dates: start: 201810

REACTIONS (1)
  - Insomnia [None]
